FAERS Safety Report 19359726 (Version 1)
Quarter: 2021Q2

REPORT INFORMATION
  Report Type: Report from Study
  Country: US (occurrence: US)
  Receive Date: 20210601
  Receipt Date: 20210601
  Transmission Date: 20210717
  Serious: Yes (Other)
  Sender: FDA-Public Use
  Company Number: US-BIOVITRUM-2021US1056

PATIENT
  Age: 36 Year
  Sex: Female

DRUGS (2)
  1. KINERET [Suspect]
     Active Substance: ANAKINRA
     Route: 058
     Dates: start: 20210310
  2. KINERET [Suspect]
     Active Substance: ANAKINRA
     Indication: JUVENILE IDIOPATHIC ARTHRITIS
     Route: 058
     Dates: start: 20210212

REACTIONS (8)
  - Fatigue [Unknown]
  - Pain [Unknown]
  - Product dose omission issue [Unknown]
  - Injection site reaction [Unknown]
  - Crohn^s disease [Unknown]
  - Off label use [Not Recovered/Not Resolved]
  - Pharyngitis streptococcal [Unknown]
  - Sinusitis [Unknown]

NARRATIVE: CASE EVENT DATE: 20210310
